FAERS Safety Report 15791084 (Version 4)
Quarter: 2019Q1

REPORT INFORMATION
  Report Type: Spontaneous
  Country: SG (occurrence: SG)
  Receive Date: 20190104
  Receipt Date: 20190123
  Transmission Date: 20190417
  Serious: Yes (Other)
  Sender: FDA-Public Use
  Company Number: SG-CELGENEUS-SGP-20190100061

PATIENT
  Age: 41 Year
  Sex: Female

DRUGS (1)
  1. REVLIMID [Suspect]
     Active Substance: LENALIDOMIDE
     Indication: ERDHEIM-CHESTER DISEASE
     Dosage: 25 MILLIGRAM
     Route: 048
     Dates: start: 20181116

REACTIONS (2)
  - Seizure [Recovered/Resolved]
  - Seizure [Recovered/Resolved]

NARRATIVE: CASE EVENT DATE: 20181227
